FAERS Safety Report 18393799 (Version 1)
Quarter: 2020Q4

REPORT INFORMATION
  Report Type: Spontaneous
  Country: US (occurrence: US)
  Receive Date: 20201016
  Receipt Date: 20201016
  Transmission Date: 20210114
  Serious: Yes (Other)
  Sender: FDA-Public Use
  Company Number: US-REGENERON PHARMACEUTICALS, INC.-2020-81721

PATIENT

DRUGS (1)
  1. LIBTAYO [Suspect]
     Active Substance: CEMIPLIMAB-RWLC
     Indication: SQUAMOUS CELL CARCINOMA OF HEAD AND NECK
     Dosage: 350 MG, Q 3 WEEKS
     Dates: start: 20200730

REACTIONS (2)
  - Metastases to central nervous system [Unknown]
  - Fatigue [Unknown]
